FAERS Safety Report 4668184-8 (Version None)
Quarter: 2005Q2

REPORT INFORMATION
  Report Type: 
  Country: None (occurrence: None)
  Receive Date: 20050523
  Receipt Date: 20050201
  Transmission Date: 20051028
  Serious: Yes (Other)
  Sender: FDA-Public Use
  Company Number: PHEH2005US01563

PATIENT
  Age: 72 Year
  Sex: Female

DRUGS (1)
  1. ZOMETA [Suspect]
     Indication: METASTASES TO BONE

REACTIONS (7)
  - DENTAL TREATMENT [None]
  - INFECTION [None]
  - OSTEOMYELITIS [None]
  - OSTEONECROSIS [None]
  - RADIATION INJURY [None]
  - SWELLING [None]
  - WOUND DRAINAGE [None]
